FAERS Safety Report 4320253-8 (Version None)
Quarter: 2004Q1

REPORT INFORMATION
  Report Type: 
  Country: None (occurrence: None)
  Receive Date: 20040317
  Receipt Date: 20040305
  Transmission Date: 20041129
  Serious: Yes (Hospitalization, Other)
  Sender: FDA-Public Use
  Company Number: 2004010195

PATIENT
  Age: 72 Year
  Sex: Male
  Weight: 57 kg

DRUGS (14)
  1. LIPITOR [Suspect]
     Indication: HYPERLIPIDAEMIA
     Dosage: 5 MG (EVERY OTHER DAY), ORAL
     Route: 048
     Dates: start: 20031201, end: 20040108
  2. DOXAZOSIN MESYLATE [Concomitant]
  3. AMLODIPINE BESYLATE [Concomitant]
  4. PREDNISOLONE [Concomitant]
  5. NICARDIPINE HCL [Concomitant]
  6. FAMOTIDINE [Concomitant]
  7. VOGLIBOSE (VOGLIBOSE) [Concomitant]
  8. FUROSEMIDE [Concomitant]
  9. AMANTADINE HCL [Concomitant]
  10. NITRAZEPAM [Concomitant]
  11. VALSARTAN (VALSARTAN) [Concomitant]
  12. CILAZAPRIL (CILAZAPRIL) [Concomitant]
  13. TEPRENONE (TEPRENONE) [Concomitant]
  14. ACETYLSALICYLIC ACID SRT [Concomitant]

REACTIONS (22)
  - ASTHENIA [None]
  - BLOOD CREATINE INCREASED [None]
  - BLOOD CREATINE PHOSPHOKINASE INCREASED [None]
  - BLOOD UREA INCREASED [None]
  - C-REACTIVE PROTEIN INCREASED [None]
  - CONDITION AGGRAVATED [None]
  - FALL [None]
  - HAEMATOCRIT DECREASED [None]
  - HAEMOGLOBIN DECREASED [None]
  - HYPERLIPIDAEMIA [None]
  - HYPERTENSION [None]
  - HYPOALBUMINAEMIA [None]
  - INCONTINENCE [None]
  - MALNUTRITION [None]
  - MUSCULAR WEAKNESS [None]
  - MYOPATHY [None]
  - NEPHROGENIC ANAEMIA [None]
  - PYREXIA [None]
  - RED BLOOD CELL COUNT DECREASED [None]
  - RENAL FAILURE [None]
  - RHEUMATOID ARTHRITIS [None]
  - WHITE BLOOD CELL COUNT INCREASED [None]
